FAERS Safety Report 10722111 (Version 1)
Quarter: 2015Q1

REPORT INFORMATION
  Report Type: Spontaneous
  Country: US (occurrence: US)
  Receive Date: 20150120
  Receipt Date: 20150120
  Transmission Date: 20150721
  Serious: Yes (Hospitalization, Other)
  Sender: FDA-Public Use
  Company Number: US-TEVA-463056USA

PATIENT
  Sex: Male

DRUGS (1)
  1. METOPROLOL [Suspect]
     Active Substance: METOPROLOL
     Indication: BLOOD PRESSURE

REACTIONS (6)
  - Headache [Unknown]
  - Blood pressure increased [Unknown]
  - Drug ineffective [Unknown]
  - Inappropriate schedule of drug administration [Unknown]
  - Blood pressure inadequately controlled [Unknown]
  - Feeling abnormal [Unknown]
